FAERS Safety Report 8905106 (Version 2)
Quarter: 2013Q1

REPORT INFORMATION
  Report Type: Spontaneous
  Country: US (occurrence: US)
  Receive Date: 20121109
  Receipt Date: 20130114
  Transmission Date: 20140127
  Serious: Yes (Hospitalization, Other)
  Sender: FDA-Public Use
  Company Number: US-ASTRAZENECA-2012SE83286

PATIENT
  Age: 49 Year
  Sex: Female
  Weight: 74.8 kg

DRUGS (9)
  1. NEXIUM [Suspect]
     Indication: GASTROOESOPHAGEAL REFLUX DISEASE
     Route: 048
     Dates: start: 2007
  2. SYMBICORT [Suspect]
     Indication: CHRONIC OBSTRUCTIVE PULMONARY DISEASE
     Dosage: 2 PUFFS DAILY
     Route: 055
     Dates: start: 2002
  3. SEROQUEL XR [Suspect]
     Indication: SLEEP DISORDER
     Route: 048
     Dates: start: 2011, end: 201110
  4. SEROQUEL XR [Suspect]
     Indication: SLEEP DISORDER
     Route: 048
     Dates: start: 201110
  5. CLONIDINE [Concomitant]
     Indication: ANXIETY
     Dates: start: 201209
  6. NAPROSYN [Concomitant]
     Indication: PAIN
     Dosage: AS REQUIRED
     Dates: start: 20121023
  7. PERCOCET [Concomitant]
     Indication: PAIN
     Dates: start: 201206
  8. CELEXA [Concomitant]
  9. KLONOPIN [Concomitant]

REACTIONS (7)
  - Blood pressure decreased [Recovered/Resolved]
  - Fall [Unknown]
  - Foot fracture [Not Recovered/Not Resolved]
  - Ankle fracture [Unknown]
  - Weight decreased [Not Recovered/Not Resolved]
  - Off label use [Unknown]
  - Drug ineffective for unapproved indication [Unknown]
